FAERS Safety Report 13091762 (Version 1)
Quarter: 2017Q1

REPORT INFORMATION
  Report Type: Spontaneous
  Country: US (occurrence: US)
  Receive Date: 20170106
  Receipt Date: 20170106
  Transmission Date: 20170428
  Serious: No
  Sender: FDA-Public Use
  Company Number: US-DRREDDYS-USA/USA/16/0083168

PATIENT
  Age: 50 Year
  Sex: Male
  Weight: 85.28 kg

DRUGS (5)
  1. HABITROL [Suspect]
     Active Substance: NICOTINE
     Indication: SMOKING CESSATION THERAPY
     Route: 062
     Dates: start: 201603
  2. ASPIRIN. [Concomitant]
     Active Substance: ASPIRIN
     Indication: PAIN IN EXTREMITY
     Route: 065
  3. HABITROL [Suspect]
     Active Substance: NICOTINE
     Route: 062
     Dates: start: 20160908
  4. TYLENOL [Concomitant]
     Active Substance: ACETAMINOPHEN
     Indication: PAIN IN EXTREMITY
     Route: 065
  5. CAPSAICIN. [Concomitant]
     Active Substance: CAPSAICIN
     Indication: PAIN IN EXTREMITY
     Route: 065

REACTIONS (2)
  - Product adhesion issue [Unknown]
  - Wrong technique in product usage process [Unknown]
